FAERS Safety Report 10155386 (Version 1)
Quarter: 2014Q2

REPORT INFORMATION
  Report Type: Spontaneous
  Country: US (occurrence: None)
  Receive Date: 20140401
  Receipt Date: 20140401
  Transmission Date: 20141212
  Serious: Yes (Other)
  Sender: FDA-Public Use
  Company Number: PHEH2012US014163

PATIENT
  Age: 81 Year
  Sex: Female

DRUGS (2)
  1. EXELON PATCH [Suspect]
     Indication: DEMENTIA ALZHEIMER^S TYPE
     Dosage: 4.6 MG/24HRS, TRANSDERMAL
     Route: 062
  2. VITAMIN D (ERGOCALCIFEROL) [Concomitant]

REACTIONS (13)
  - Dementia Alzheimer^s type [None]
  - Ephelides [None]
  - Abasia [None]
  - Obsessive thoughts [None]
  - Abnormal behaviour [None]
  - Muscular weakness [None]
  - Malaise [None]
  - Application site discolouration [None]
  - Dizziness [None]
  - Decreased appetite [None]
  - Nausea [None]
  - Tremor [None]
  - Drug ineffective [None]
